FAERS Safety Report 12308097 (Version 1)
Quarter: 2016Q2

REPORT INFORMATION
  Report Type: Spontaneous
  Country: US (occurrence: US)
  Receive Date: 20160426
  Receipt Date: 20160426
  Transmission Date: 20160815
  Serious: No
  Sender: FDA-Public Use
  Company Number: US-FRESENIUS KABI-FK201602159

PATIENT
  Sex: Female

DRUGS (1)
  1. OXYTOCIN INJECTION, USP [Suspect]
     Active Substance: OXYTOCIN
     Indication: POST PROCEDURAL HAEMORRHAGE
     Route: 065

REACTIONS (1)
  - Drug ineffective [Unknown]
